FAERS Safety Report 10536298 (Version 2)
Quarter: 2014Q4

REPORT INFORMATION
  Report Type: Spontaneous
  Country: US (occurrence: US)
  Receive Date: 20141022
  Receipt Date: 20141022
  Transmission Date: 20150529
  Serious: Yes (Other)
  Sender: FDA-Public Use
  Company Number: US-RECKITT BENCKISER PHARMACEUTICAL, INC-RB-61624-2013

PATIENT

DRUGS (7)
  1. SUBOXONE [Suspect]
     Active Substance: BUPRENORPHINE HYDROCHLORIDE\NALOXONE HYDROCHLORIDE
     Dosage: SUBOXONE FILM
     Route: 063
     Dates: start: 20130801, end: 201308
  2. NICOTINE. [Concomitant]
     Active Substance: NICOTINE
     Indication: PRODUCT USED FOR UNKNOWN INDICATION
     Dosage: 1/2 PACK PER DAY
     Route: 064
     Dates: start: 20121029, end: 20130730
  3. SUBUTEX [Suspect]
     Active Substance: BUPRENORPHINE HYDROCHLORIDE
     Indication: DRUG DEPENDENCE
     Route: 064
     Dates: start: 201212, end: 20130730
  4. PRENATAL VITAMINS [Concomitant]
     Active Substance: VITAMINS
     Indication: NUTRITIONAL SUPPLEMENTATION
     Dosage: DOSING REGIMEN UNKNOWN; TAKING DAILY
     Route: 065
     Dates: start: 201212, end: 201307
  5. SUBOXONE [Suspect]
     Active Substance: BUPRENORPHINE HYDROCHLORIDE\NALOXONE HYDROCHLORIDE
     Indication: DRUG DEPENDENCE
     Dosage: SUBOXONE FILM
     Route: 064
     Dates: start: 2012, end: 201212
  6. SUBUTEX [Suspect]
     Active Substance: BUPRENORPHINE HYDROCHLORIDE
     Dosage: BREASTFEEDING STARTED ON 31-JUL-2013
     Route: 063
     Dates: start: 20130731, end: 20130731
  7. NICOTINE. [Concomitant]
     Active Substance: NICOTINE
     Dosage: 1/2 PACK PER DAY
     Route: 063
     Dates: start: 20130731, end: 201308

REACTIONS (4)
  - Exposure during breast feeding [Recovered/Resolved]
  - Convulsion neonatal [Recovered/Resolved]
  - Muscle twitching [Recovered/Resolved]
  - Foetal exposure during pregnancy [Recovered/Resolved]

NARRATIVE: CASE EVENT DATE: 2012
